FAERS Safety Report 7644805-2 (Version None)
Quarter: 2011Q3

REPORT INFORMATION
  Report Type: 
  Country: None (occurrence: None)
  Receive Date: 20110729
  Receipt Date: 20110721
  Transmission Date: 20111222
  Serious: Yes (Disabling, Other)
  Sender: FDA-Public Use
  Company Number: CA-JNJFOC-20110103004

PATIENT
  Age: 46 Year
  Sex: Male

DRUGS (1)
  1. TRAMADOL HYDROCHLORIDE/ACETAMINOPHEN [Suspect]
     Indication: ARTHRALGIA
     Dosage: 3 TO 6 TABLETS PER DAY
     Route: 048
     Dates: start: 20100401

REACTIONS (4)
  - JUDGEMENT IMPAIRED [None]
  - DISTURBANCE IN ATTENTION [None]
  - FATIGUE [None]
  - SOMNOLENCE [None]
